FAERS Safety Report 7010420 (Version 2)
Quarter: 2014Q1

REPORT INFORMATION
  Report Type: Spontaneous
  Country: US (occurrence: None)
  Receive Date: 20090526
  Receipt Date: 20140207
  Transmission Date: 20141002
  Serious: Yes (Hospitalization, Other)
  Sender: FDA-Public Use
  Company Number: 2009S1004066

PATIENT
  Age: 55 Year
  Sex: Female
  Weight: 113.4 kg

DRUGS (11)
  1. FLEET PHOSPHO-SODA [Suspect]
     Indication: PRODUCT USED FOR UNKNOWN INDICATION
     Dosage: PO
     Route: 048
  2. FLEET STIMULANT [Suspect]
     Indication: PRODUCT USED FOR UNKNOWN INDICATION
  3. FLEET ENEMA [Suspect]
     Indication: PRODUCT USED FOR UNKNOWN INDICATION
     Dosage: AT LEAST 15-18 ENEMAS FROM FEB-MAY 2008, RECTAL
     Dates: start: 200802, end: 200805
  4. FLEET BISACODYL [Suspect]
     Indication: PRODUCT USED FOR UNKNOWN INDICATION
     Route: 054
  5. LISINOPRIL HCT (HYDROCHLOROTHIAZIDE, LISINOPRIL DIHYDRATE) [Concomitant]
  6. ACTONEL (RISEDRONATE SODIUM) [Concomitant]
  7. CRESTOR (ROSUVASTATIN CALCIUM) [Concomitant]
  8. GLUCOVANCE (METFORMIN HYDROCHLORIDE, GLIBENCLAMIDE) [Concomitant]
  9. LYRICA (PREGABALIN) [Concomitant]
  10. JANUVIA (SITAGLIPTIN PHOSPHATE) [Concomitant]
  11. ALEVE (NAPROXEN SODIUM) [Concomitant]

REACTIONS (1)
  - Renal failure [None]
